FAERS Safety Report 15901494 (Version 1)
Quarter: 2019Q1

REPORT INFORMATION
  Report Type: Spontaneous
  Country: US (occurrence: US)
  Receive Date: 20190201
  Receipt Date: 20190201
  Transmission Date: 20190417
  Serious: Yes (Hospitalization)
  Sender: FDA-Public Use
  Company Number: None

PATIENT
  Age: 58 Year
  Sex: Female

DRUGS (16)
  1. ARAVA [Concomitant]
     Active Substance: LEFLUNOMIDE
  2. ENBREL [Suspect]
     Active Substance: ETANERCEPT
     Indication: RHEUMATOID ARTHRITIS
     Dosage: ?          OTHER FREQUENCY:QW;?
     Route: 058
     Dates: start: 20180126
  3. CELEBREX [Concomitant]
     Active Substance: CELECOXIB
  4. TYLENOL [Concomitant]
     Active Substance: ACETAMINOPHEN
  5. WELCHOL [Concomitant]
     Active Substance: COLESEVELAM HYDROCHLORIDE
  6. FIBER TABLET [Concomitant]
  7. ASPIRIN. [Concomitant]
     Active Substance: ASPIRIN
  8. CALCIUM D [Concomitant]
     Active Substance: CALCIUM\VITAMIN D
  9. TRULICITY [Concomitant]
     Active Substance: DULAGLUTIDE
  10. PREDNISONE. [Concomitant]
     Active Substance: PREDNISONE
  11. GLUCOSAMINE [Concomitant]
     Active Substance: GLUCOSAMINE
  12. LEVOTHYROXIN [Concomitant]
     Active Substance: LEVOTHYROXINE
  13. PLAQUENIL [Concomitant]
     Active Substance: HYDROXYCHLOROQUINE SULFATE
  14. ELIQUIS [Concomitant]
     Active Substance: APIXABAN
  15. LOMOTIL [Concomitant]
     Active Substance: ATROPINE SULFATE\DIPHENOXYLATE HYDROCHLORIDE
  16. OMEGA-3 ACIDS [Concomitant]
     Active Substance: OMEGA-3 FATTY ACIDS

REACTIONS (2)
  - Therapy cessation [None]
  - Surgery [None]

NARRATIVE: CASE EVENT DATE: 20190123
